FAERS Safety Report 4335672-3 (Version None)
Quarter: 2004Q2

REPORT INFORMATION
  Report Type: 
  Country: None (occurrence: None)
  Receive Date: 20040409
  Receipt Date: 20040322
  Transmission Date: 20050107
  Serious: Yes (Death, Hospitalization)
  Sender: FDA-Public Use
  Company Number: US-GLAXOSMITHKLINE-A0503834A

PATIENT
  Age: 52 Year
  Sex: Male

DRUGS (5)
  1. IMITREX [Suspect]
     Indication: MIGRAINE
     Route: 045
  2. IMITREX [Suspect]
     Route: 058
  3. IMITREX [Suspect]
     Route: 048
  4. ANTI HYPERTENSIVE [Concomitant]
  5. BETABLOCKER [Concomitant]

REACTIONS (4)
  - CARDIAC ARREST [None]
  - COMA [None]
  - FALL [None]
  - MYOCARDIAL INFARCTION [None]
